FAERS Safety Report 7346382-2 (Version None)
Quarter: 2011Q1

REPORT INFORMATION
  Report Type: 
  Country: None (occurrence: None)
  Receive Date: 20110311
  Receipt Date: 20110211
  Transmission Date: 20110831
  Serious: No
  Sender: FDA-Public Use
  Company Number: US-B.I. PHARMACEUTICALS,INC./RIDGEFIELD-2011-BP-03918BP

PATIENT
  Sex: Female

DRUGS (16)
  1. ALBUTEROL [Concomitant]
     Indication: CHRONIC OBSTRUCTIVE PULMONARY DISEASE
     Route: 055
  2. METFORMIN [Concomitant]
     Dosage: 1000 MG
     Route: 048
  3. SPIRIVA [Suspect]
     Indication: CHRONIC OBSTRUCTIVE PULMONARY DISEASE
     Dosage: 18 MCG
     Route: 055
     Dates: start: 20100201
  4. WARFARIN [Concomitant]
     Indication: CARDIAC DISORDER
     Route: 048
  5. DIGOXIN [Concomitant]
     Indication: CARDIAC DISORDER
     Dosage: 125 MG
     Route: 048
  6. ASPIRIN [Concomitant]
     Indication: PROPHYLAXIS
     Dosage: 81 MG
     Route: 048
  7. SYMBICORT [Concomitant]
     Indication: CHRONIC OBSTRUCTIVE PULMONARY DISEASE
     Route: 055
  8. LEVOTHYROXINE SODIUM [Concomitant]
     Indication: THYROID DISORDER
     Dosage: 15 MG
     Route: 048
  9. LIPITOR [Concomitant]
     Indication: CARDIAC DISORDER
     Dosage: 10 MG
     Route: 048
  10. DILTIAZEM [Concomitant]
     Indication: CARDIAC DISORDER
     Dosage: 240 MG
     Route: 048
  11. XOPENEX [Concomitant]
     Indication: CHRONIC OBSTRUCTIVE PULMONARY DISEASE
     Route: 055
  12. LISINOPRIL [Concomitant]
     Indication: CARDIAC DISORDER
     Dosage: 5 MG
     Route: 048
  13. FUROSEMIDE [Concomitant]
     Dosage: 20 MG
     Route: 048
  14. POTASSIUM CHLORIDE [Concomitant]
     Indication: PROPHYLAXIS
     Dosage: 10 MEQ
     Route: 048
  15. ATENOLOL [Concomitant]
     Indication: CARDIAC DISORDER
     Dosage: 12.5 MG
     Route: 048
  16. DOXYCYCLINE [Concomitant]
     Dosage: 100 MG
     Route: 048

REACTIONS (2)
  - DYSPHONIA [None]
  - FEELING ABNORMAL [None]
